FAERS Safety Report 24671470 (Version 2)
Quarter: 2024Q4

REPORT INFORMATION
  Report Type: Report from Study
  Country: EG (occurrence: EG)
  Receive Date: 20241127
  Receipt Date: 20241212
  Transmission Date: 20250115
  Serious: No
  Sender: BIOGEN
  Company Number: EG-BIOGEN-2024BI01265917

PATIENT
  Age: 26 Year
  Sex: Female
  Weight: 50 kg

DRUGS (2)
  1. TYSABRI [Suspect]
     Active Substance: NATALIZUMAB
     Indication: Multiple sclerosis
     Route: 050
     Dates: start: 202401
  2. IRON [Concomitant]
     Active Substance: IRON
     Indication: Product used for unknown indication
     Dosage: TWO DOSES OF IRON INJECTION IN MAY-2024, LAST DOSE WAS 7-10 DAYS BEFORE DELIVERY
     Route: 050
     Dates: start: 202405, end: 202405

REACTIONS (4)
  - Impaired healing [Unknown]
  - Weight decreased [Unknown]
  - Anaemia [Unknown]
  - Maternal exposure during pregnancy [Recovered/Resolved]

NARRATIVE: CASE EVENT DATE: 20240101
